FAERS Safety Report 14100267 (Version 3)
Quarter: 2018Q1

REPORT INFORMATION
  Report Type: Report from Study
  Country: US (occurrence: US)
  Receive Date: 20171017
  Receipt Date: 20180201
  Transmission Date: 20180508
  Serious: No
  Sender: FDA-Public Use
  Company Number: PHEH2017US033326

PATIENT
  Sex: Male
  Weight: 137.8 kg

DRUGS (2)
  1. COSENTYX [Suspect]
     Active Substance: SECUKINUMAB
     Indication: PSORIASIS
  2. COSENTYX [Suspect]
     Active Substance: SECUKINUMAB
     Indication: PSORIASIS
     Dosage: 300 MG (TWO 150 MG PENS), QMO
     Route: 058

REACTIONS (3)
  - Drug ineffective [Unknown]
  - Mouth swelling [Unknown]
  - Toothache [Unknown]
